FAERS Safety Report 4710678-0 (Version None)
Quarter: 2005Q3

REPORT INFORMATION
  Report Type: 
  Country: None (occurrence: None)
  Receive Date: 20050707
  Receipt Date: 20050620
  Transmission Date: 20060218
  Serious: Yes (Death)
  Sender: FDA-Public Use
  Company Number: JP_050606833

PATIENT
  Age: 77 Year
  Sex: Male

DRUGS (1)
  1. GEMZAR [Suspect]
     Indication: PANCREATIC CARCINOMA
     Dosage: 1200 MG OTHER
     Route: 050
     Dates: start: 20050510, end: 20050525

REACTIONS (1)
  - PNEUMONITIS [None]
